FAERS Safety Report 20226934 (Version 1)
Quarter: 2021Q4

REPORT INFORMATION
  Report Type: Spontaneous
  Country: DE (occurrence: DE)
  Receive Date: 20211224
  Receipt Date: 20211224
  Transmission Date: 20220303
  Serious: Yes (Other)
  Sender: FDA-Public Use
  Company Number: DE-TEVA-2021-DE-1991185

PATIENT
  Sex: Female

DRUGS (5)
  1. VORICONAZOLE [Suspect]
     Active Substance: VORICONAZOLE
     Indication: Antifungal prophylaxis
     Route: 065
     Dates: start: 20151208, end: 20160213
  2. ANIDULAFUNGIN [Suspect]
     Active Substance: ANIDULAFUNGIN
     Indication: Candida infection
     Dosage: INITIAL DOSE UNKNOWN
     Route: 065
     Dates: start: 20160115, end: 20160121
  3. ANIDULAFUNGIN [Suspect]
     Active Substance: ANIDULAFUNGIN
     Route: 065
     Dates: start: 20160220, end: 20160228
  4. CASPOFUNGIN [Suspect]
     Active Substance: CASPOFUNGIN
     Indication: Candida infection
     Dosage: ON THE INITIAL DAY
     Route: 065
     Dates: start: 20160213
  5. CASPOFUNGIN [Suspect]
     Active Substance: CASPOFUNGIN
     Route: 065
     Dates: start: 20160214, end: 20160220

REACTIONS (1)
  - Drug resistance [Unknown]
